FAERS Safety Report 9770132 (Version 2)
Quarter: 2013Q4

REPORT INFORMATION
  Report Type: Spontaneous
  Country: US (occurrence: US)
  Receive Date: 20131218
  Receipt Date: 20131218
  Transmission Date: 20140711
  Serious: No
  Sender: FDA-Public Use
  Company Number: US-VERTEX PHARMACEUTICALS INC-AE-2011-000894

PATIENT
  Sex: 0

DRUGS (14)
  1. INCIVEK [Suspect]
     Indication: HEPATITIS C
     Dates: start: 20110810
  2. PEGASYS [Concomitant]
     Indication: HEPATITIS C
     Dates: start: 20110810
  3. RIBAVIRIN [Concomitant]
     Indication: HEPATITIS C
     Dates: start: 20110810
  4. CORTICOSTEROID CREAM [Concomitant]
     Indication: RASH GENERALISED
     Route: 061
  5. BENADRYL [Concomitant]
     Indication: ANTIALLERGIC THERAPY
  6. MULTIVITAMIN [Concomitant]
     Indication: VITAMIN SUPPLEMENTATION
  7. ASPIRIN [Concomitant]
     Indication: ANTICOAGULANT THERAPY
  8. NADOLOL [Concomitant]
  9. OMEPRAZOLE [Concomitant]
  10. METOPROLOL [Concomitant]
  11. GLIMEPIRIDE [Concomitant]
  12. LANTUS [Concomitant]
  13. MILK THISTLE [Concomitant]
  14. FISH OIL [Concomitant]

REACTIONS (4)
  - Cellulitis orbital [Recovered/Resolved]
  - Blood glucose increased [Recovered/Resolved]
  - Pyrexia [Unknown]
  - Rash generalised [Recovered/Resolved]
